FAERS Safety Report 5808948-8 (Version None)
Quarter: 2008Q3

REPORT INFORMATION
  Report Type: 
  Country: None (occurrence: None)
  Receive Date: 20080710
  Receipt Date: 20080710
  Transmission Date: 20090109
  Serious: No
  Sender: FDA-Public Use
  Company Number: None

PATIENT
  Age: 51 Year
  Sex: Male
  Weight: 136.0791 kg

DRUGS (2)
  1. LEVAQUIN [Suspect]
     Indication: BRONCHITIS
     Dosage: 1 PILL 1XDAY PO
     Route: 048
     Dates: start: 20080630, end: 20080708
  2. LEVAQUIN [Suspect]
     Indication: PNEUMONIA
     Dosage: 1 PILL 1XDAY PO
     Route: 048
     Dates: start: 20080630, end: 20080708

REACTIONS (3)
  - ARTHRALGIA [None]
  - DRUG EFFECT DECREASED [None]
  - JOINT SWELLING [None]
